FAERS Safety Report 25610211 (Version 1)
Quarter: 2025Q3

REPORT INFORMATION
  Report Type: Spontaneous
  Country: US (occurrence: US)
  Receive Date: 20250728
  Receipt Date: 20250728
  Transmission Date: 20251021
  Serious: No
  Sender: SAREPTA THERAPEUTICS
  Company Number: US-SAREPTA THERAPEUTICS INC.-SRP2025-005540

PATIENT
  Age: 10 Year
  Sex: Male
  Weight: 24.07 kg

DRUGS (2)
  1. AMONDYS 45 [Suspect]
     Active Substance: CASIMERSEN
     Indication: Product used for unknown indication
     Route: 042
     Dates: start: 20211119, end: 20250108
  2. AMONDYS 45 [Suspect]
     Active Substance: CASIMERSEN
     Route: 042
     Dates: start: 20250122

REACTIONS (3)
  - Product distribution issue [Unknown]
  - Product dose omission issue [Unknown]
  - No adverse event [Unknown]

NARRATIVE: CASE EVENT DATE: 20250116
